FAERS Safety Report 5223792-0 (Version None)
Quarter: 2007Q1

REPORT INFORMATION
  Report Type: 
  Country: None (occurrence: None)
  Receive Date: 20070130
  Receipt Date: 20070124
  Transmission Date: 20070707
  Serious: Yes (Disabling)
  Sender: FDA-Public Use
  Company Number: GB-BAYER-200710026BNE

PATIENT
  Sex: Male

DRUGS (1)
  1. CIPROFLOXACIN [Suspect]

REACTIONS (3)
  - HYPNAGOGIC HALLUCINATION [None]
  - NIGHTMARE [None]
  - SCREAMING [None]
